FAERS Safety Report 5293770-4 (Version None)
Quarter: 2007Q2

REPORT INFORMATION
  Report Type: 
  Country: None (occurrence: None)
  Receive Date: 20070411
  Receipt Date: 20070330
  Transmission Date: 20071010
  Serious: Yes (Other)
  Sender: FDA-Public Use
  Company Number: GB-PFIZER INC-2007014168

PATIENT
  Sex: Female
  Weight: 69.9 kg

DRUGS (5)
  1. NEURONTIN [Suspect]
     Indication: NEURALGIA
     Route: 048
  2. NEURONTIN [Suspect]
     Indication: PAIN
  3. NEURONTIN [Suspect]
     Indication: INSOMNIA
  4. AMITRIPTYLINE HYDROCHLORIDE [Suspect]
     Indication: SLEEP DISORDER
  5. ZOPICLONE [Concomitant]

REACTIONS (4)
  - FEELING ABNORMAL [None]
  - FIBROMYALGIA [None]
  - NEURALGIA [None]
  - POOR QUALITY SLEEP [None]
